FAERS Safety Report 5421266-5 (Version None)
Quarter: 2007Q3

REPORT INFORMATION
  Report Type: 
  Country: None (occurrence: None)
  Receive Date: 20070817
  Receipt Date: 20070802
  Transmission Date: 20080115
  Serious: Yes (Hospitalization, Other)
  Sender: FDA-Public Use
  Company Number: 015754

PATIENT
  Age: 71 Year
  Sex: Male
  Weight: 69.8 kg

DRUGS (8)
  1. HYDRALAZINE HCL [Suspect]
     Indication: HYPERTENSION
     Dosage: 50 MG, BID, ORAL
     Route: 048
     Dates: start: 20070601, end: 20070625
  2. COREG [Suspect]
     Dosage: 12.5 MG, BID, ORAL, 20  MG, QD, ORAL
     Route: 048
  3. ALDACTONE [Suspect]
     Dosage: 0.5 TABLET, QD, ORAL
     Route: 048
  4. NORVASC [Suspect]
     Dosage: 10 MG, ORAL
     Route: 048
  5. LASIX [Suspect]
     Dosage: 20 MG, ORAL
     Route: 048
  6. DIOVAN [Suspect]
     Dosage: BID, ORAL
     Route: 048
  7. LOTENSIN (BENZAPERIL HYDROCHLORIDE) [Concomitant]
  8. ASPIRIN [Concomitant]

REACTIONS (10)
  - BLOOD GLUCOSE FLUCTUATION [None]
  - BLOOD PRESSURE INCREASED [None]
  - CARDIAC FAILURE CONGESTIVE [None]
  - CORONARY ARTERY DISEASE [None]
  - DERMATITIS ACNEIFORM [None]
  - DIZZINESS [None]
  - JOINT SWELLING [None]
  - PULMONARY OEDEMA [None]
  - RASH PRURITIC [None]
  - VISION BLURRED [None]
